FAERS Safety Report 8016094-0 (Version None)
Quarter: 2011Q4

REPORT INFORMATION
  Report Type: 
  Country: None (occurrence: None)
  Receive Date: 20111230
  Receipt Date: 20111221
  Transmission Date: 20120403
  Serious: Yes (Other)
  Sender: FDA-Public Use
  Company Number: PE-BRISTOL-MYERS SQUIBB COMPANY-16310948

PATIENT
  Age: 50 Year
  Sex: Female

DRUGS (1)
  1. IXABEPILONE [Suspect]

REACTIONS (1)
  - SKIN TOXICITY [None]
